FAERS Safety Report 10067152 (Version 1)
Quarter: 2014Q2

REPORT INFORMATION
  Report Type: Spontaneous
  Country: US (occurrence: None)
  Receive Date: 20140408
  Receipt Date: 20140408
  Transmission Date: 20141212
  Serious: Yes (Disabling)
  Sender: FDA-Public Use
  Company Number: None

PATIENT
  Age: 33 Year
  Sex: Male
  Weight: 85.28 kg

DRUGS (1)
  1. WOOD E (SEXUAL STIMULANT) [Suspect]

REACTIONS (2)
  - Palpitations [None]
  - Hypoaesthesia [None]
